FAERS Safety Report 22203724 (Version 1)
Quarter: 2023Q2

REPORT INFORMATION
  Report Type: Spontaneous
  Country: US (occurrence: US)
  Receive Date: 20230412
  Receipt Date: 20230412
  Transmission Date: 20230722
  Serious: Yes (Other)
  Sender: FDA-Public Use
  Company Number: US-TAKEDA-2023TUS035062

PATIENT
  Sex: Female

DRUGS (11)
  1. ADDERALL XR [Suspect]
     Active Substance: AMPHETAMINE ASPARTATE\AMPHETAMINE SULFATE\DEXTROAMPHETAMINE SACCHARATE\DEXTROAMPHETAMINE SULFATE
     Indication: Attention deficit hyperactivity disorder
     Dosage: 7.5 MILLIGRAM
     Route: 065
  2. ADDERALL XR [Suspect]
     Active Substance: AMPHETAMINE ASPARTATE\AMPHETAMINE SULFATE\DEXTROAMPHETAMINE SACCHARATE\DEXTROAMPHETAMINE SULFATE
     Dosage: 5 MILLIGRAM
     Route: 065
  3. ENOXAPARIN SODIUM [Suspect]
     Active Substance: ENOXAPARIN SODIUM
     Indication: Product used for unknown indication
     Dosage: UNK
     Route: 065
  4. ENOXAPARIN SODIUM [Suspect]
     Active Substance: ENOXAPARIN SODIUM
     Dosage: UNK
     Route: 065
  5. OMNITROPE [Suspect]
     Active Substance: SOMATROPIN
     Indication: Product used for unknown indication
     Dosage: UNK
     Route: 065
  6. AMPICILLIN [Suspect]
     Active Substance: AMPICILLIN
     Indication: Product used for unknown indication
     Dosage: 2 GRAM
     Route: 065
  7. AMPICILLIN [Suspect]
     Active Substance: AMPICILLIN
     Dosage: 125 MILLIGRAM
     Route: 065
  8. AMPICILLIN [Suspect]
     Active Substance: AMPICILLIN
     Dosage: 250 MILLIGRAM
     Route: 065
  9. AMPICILLIN [Suspect]
     Active Substance: AMPICILLIN
     Dosage: 1 GRAM
     Route: 065
  10. AMPICILLIN [Suspect]
     Active Substance: AMPICILLIN
     Dosage: 2 GRAM
     Route: 065
  11. ESTRADIOL [Suspect]
     Active Substance: ESTRADIOL
     Indication: Product used for unknown indication
     Dosage: UNK UNK, QD
     Route: 065

REACTIONS (25)
  - Disability [Unknown]
  - Loss of personal independence in daily activities [Unknown]
  - Product availability issue [Unknown]
  - Insurance issue [Unknown]
  - Device malfunction [Unknown]
  - Device defective [Unknown]
  - Syringe issue [Unknown]
  - Product quality issue [Unknown]
  - Lip swelling [Unknown]
  - Migraine [Unknown]
  - Renal pain [Unknown]
  - Sleep disorder [Unknown]
  - Agoraphobia [Unknown]
  - Menopause [Unknown]
  - Hot flush [Unknown]
  - Product barcode issue [Unknown]
  - Drug ineffective [Unknown]
  - Disturbance in attention [Unknown]
  - Anxiety [Unknown]
  - Nausea [Unknown]
  - Fatigue [Unknown]
  - Heart rate increased [Unknown]
  - Headache [Unknown]
  - Product use issue [Unknown]
  - Product dispensing error [Unknown]
